FAERS Safety Report 9907887 (Version 2)
Quarter: 2014Q1

REPORT INFORMATION
  Report Type: Spontaneous
  Country: US (occurrence: US)
  Receive Date: 20140219
  Receipt Date: 20140313
  Transmission Date: 20141002
  Serious: No
  Sender: FDA-Public Use
  Company Number: US-BIOGENIDEC-2014BI014571

PATIENT
  Age: 24 Year
  Sex: Male

DRUGS (3)
  1. TECFIDERA [Suspect]
     Indication: PRODUCT USED FOR UNKNOWN INDICATION
     Route: 048
     Dates: start: 201305, end: 201312
  2. AVONEX [Concomitant]
     Indication: MULTIPLE SCLEROSIS
     Route: 030
     Dates: start: 20130105
  3. TYSABRI [Concomitant]
     Indication: MULTIPLE SCLEROSIS
     Route: 042
     Dates: start: 20131219

REACTIONS (5)
  - Drug ineffective [Unknown]
  - Nuclear magnetic resonance imaging abnormal [Unknown]
  - Diplopia [Unknown]
  - Muscular weakness [Unknown]
  - Multiple sclerosis relapse [Unknown]
